FAERS Safety Report 10504822 (Version 1)
Quarter: 2014Q3

REPORT INFORMATION
  Report Type: Spontaneous
  Country: US (occurrence: None)
  Receive Date: 20140926
  Receipt Date: 20140926
  Transmission Date: 20150326
  Serious: No
  Sender: FDA-Public Use
  Company Number: 1000069171

PATIENT
  Age: 45 Year
  Sex: Female

DRUGS (4)
  1. AMPYRA [Concomitant]
     Active Substance: DALFAMPRIDINE
  2. COPAXONE [Concomitant]
     Active Substance: GLATIRAMER ACETATE
  3. LINZESS [Suspect]
     Active Substance: LINACLOTIDE
     Indication: CONSTIPATION
     Dosage: 290 MCG (290MCG, 1 IN 1D), ORAL
     Route: 048
     Dates: start: 201406
  4. MYRBETRIQ (MIRABEGRON) [Concomitant]
     Indication: CONSTIPATION

REACTIONS (1)
  - Drug ineffective [None]

NARRATIVE: CASE EVENT DATE: 201407
